FAERS Safety Report 11700558 (Version 3)
Quarter: 2015Q4

REPORT INFORMATION
  Report Type: Spontaneous
  Country: IT (occurrence: IT)
  Receive Date: 20151105
  Receipt Date: 20151209
  Transmission Date: 20160304
  Serious: Yes (Other)
  Sender: FDA-Public Use
  Company Number: IT-ACTAVIS-2015-23493

PATIENT
  Age: 78 Year
  Sex: Male
  Weight: 76 kg

DRUGS (1)
  1. QUETIAPINE [Suspect]
     Active Substance: QUETIAPINE
     Indication: CONDUCT DISORDER
     Dosage: 50 MG, DAILY
     Route: 048
     Dates: start: 20150423, end: 20150427

REACTIONS (4)
  - Parasomnia [Recovered/Resolved]
  - Hallucination, visual [Recovered/Resolved]
  - Sleep talking [Recovered/Resolved]
  - Insomnia [Recovered/Resolved]

NARRATIVE: CASE EVENT DATE: 20150423
